FAERS Safety Report 24779952 (Version 2)
Quarter: 2025Q1

REPORT INFORMATION
  Report Type: Spontaneous
  Country: IL (occurrence: IL)
  Receive Date: 20241226
  Receipt Date: 20250116
  Transmission Date: 20250409
  Serious: Yes (Other)
  Sender: NOVO NORDISK
  Company Number: IL-NOVOPROD-1340049

PATIENT
  Age: 53 Year
  Sex: Male
  Weight: 108 kg

DRUGS (1)
  1. WEGOVY [Suspect]
     Active Substance: SEMAGLUTIDE
     Indication: Obesity
     Dosage: 1.7 MG, QW( 8 CLICKS)
     Route: 058
     Dates: start: 20241117

REACTIONS (12)
  - Erectile dysfunction [Unknown]
  - Blood testosterone decreased [Unknown]
  - Spinal disorder [Unknown]
  - Dyspepsia [Unknown]
  - Hepatic enzyme increased [Unknown]
  - Road traffic accident [Unknown]
  - Anosmia [Unknown]
  - Asthenia [Unknown]
  - Fatigue [Unknown]
  - Abdominal distension [Unknown]
  - Dyspepsia [Unknown]
  - Wrong technique in product usage process [Unknown]

NARRATIVE: CASE EVENT DATE: 20241117
